FAERS Safety Report 7635926-9 (Version None)
Quarter: 2011Q3

REPORT INFORMATION
  Report Type: 
  Country: None (occurrence: None)
  Receive Date: 20110726
  Receipt Date: 20110720
  Transmission Date: 20111222
  Serious: Yes (Death)
  Sender: FDA-Public Use
  Company Number: US-ASTRAZENECA-2011SE40492

PATIENT
  Age: 78 Year
  Sex: Female
  Weight: 41.7 kg

DRUGS (8)
  1. WARFARIN [Concomitant]
     Indication: RHEUMATIC HEART DISEASE
  2. RANITADINE [Concomitant]
  3. INSULIN [Concomitant]
     Indication: DIABETES MELLITUS
  4. ARICEPT [Concomitant]
  5. TRAMADOL HCL [Concomitant]
  6. OXYCODONE HCL [Concomitant]
  7. SEROQUEL [Suspect]
     Indication: ABNORMAL BEHAVIOUR
     Route: 048
     Dates: start: 20090701
  8. ENALAPRIL MALEATE [Concomitant]

REACTIONS (1)
  - MULTIMORBIDITY [None]
